FAERS Safety Report 22624731 (Version 1)
Quarter: 2023Q2

REPORT INFORMATION
  Report Type: Spontaneous
  Country: CN (occurrence: CN)
  Receive Date: 20230621
  Receipt Date: 20230621
  Transmission Date: 20230722
  Serious: Yes (Other)
  Sender: FDA-Public Use
  Company Number: CN-BAYER-2023A086074

PATIENT
  Age: 79 Year
  Sex: Female
  Weight: 40 kg

DRUGS (4)
  1. ULTRAVIST [Suspect]
     Active Substance: IOPROMIDE
     Indication: Angiocardiogram
     Dosage: 90 ML, ONCE
     Route: 013
     Dates: start: 20230517, end: 20230517
  2. ULTRAVIST [Suspect]
     Active Substance: IOPROMIDE
     Indication: Coronary arterial stent insertion
     Dosage: 70 ML, ONCE
     Route: 013
     Dates: start: 20230517, end: 20230517
  3. ULTRAVIST [Suspect]
     Active Substance: IOPROMIDE
     Indication: Arteriosclerosis coronary artery
  4. ULTRAVIST [Suspect]
     Active Substance: IOPROMIDE
     Indication: Peripheral arteriogram

REACTIONS (2)
  - Renal impairment [Recovering/Resolving]
  - Retroperitoneal haematoma [Recovering/Resolving]

NARRATIVE: CASE EVENT DATE: 20230517
